FAERS Safety Report 7224507-7 (Version None)
Quarter: 2011Q1

REPORT INFORMATION
  Report Type: 
  Country: None (occurrence: None)
  Receive Date: 20110113
  Receipt Date: 20110106
  Transmission Date: 20110831
  Serious: Yes (Other)
  Sender: FDA-Public Use
  Company Number: US-PFIZER INC-2010120515

PATIENT
  Sex: Female

DRUGS (1)
  1. CHANTIX [Suspect]
     Indication: SMOKING CESSATION THERAPY
     Dosage: STARTER PACK
     Route: 048
     Dates: end: 20080920

REACTIONS (8)
  - IRRITABILITY [None]
  - ANXIETY [None]
  - SUICIDAL IDEATION [None]
  - PANIC ATTACK [None]
  - LOSS OF CONSCIOUSNESS [None]
  - PARANOIA [None]
  - DISTURBANCE IN ATTENTION [None]
  - MEMORY IMPAIRMENT [None]
